FAERS Safety Report 4322748-X (Version None)
Quarter: 2004Q1

REPORT INFORMATION
  Report Type: 
  Country: None (occurrence: None)
  Receive Date: 20040324
  Receipt Date: 20040310
  Transmission Date: 20041129
  Serious: Yes (Hospitalization)
  Sender: FDA-Public Use
  Company Number: TW-GLAXOSMITHKLINE-B0326168A

PATIENT
  Age: 69 Year
  Sex: Female

DRUGS (2)
  1. FLUTICASONE PROPIONATE [Suspect]
     Indication: ASTHMA
     Dosage: 250MCG TWICE PER DAY
     Route: 055
     Dates: start: 20030409
  2. THEOPHYLLINE [Suspect]
     Indication: ASTHMA
     Dosage: 200MG TWICE PER DAY
     Route: 048
     Dates: start: 20031023

REACTIONS (4)
  - PAIN [None]
  - PYELONEPHRITIS ACUTE [None]
  - PYREXIA [None]
  - URINARY TRACT INFECTION [None]
